FAERS Safety Report 25374648 (Version 1)
Quarter: 2025Q2

REPORT INFORMATION
  Report Type: Spontaneous
  Country: CN (occurrence: CN)
  Receive Date: 20250529
  Receipt Date: 20250529
  Transmission Date: 20250717
  Serious: Yes (Other)
  Sender: SANOFI AVENTIS
  Company Number: CN-SA-2025SA150131

PATIENT
  Age: 33 Year
  Sex: Male
  Weight: 62 kg

DRUGS (2)
  1. INSULIN GLARGINE [Suspect]
     Active Substance: INSULIN GLARGINE
     Indication: Type 2 diabetes mellitus
     Dosage: 11 U, QD
     Route: 058
     Dates: start: 20250417, end: 20250421
  2. INSULIN ASPART [Suspect]
     Active Substance: INSULIN ASPART
     Indication: Type 2 diabetes mellitus
     Dosage: 4 U SC IN THE MORNING, INSULIN ASPART INJECTION 4 U SC AT NOON AND INSULIN ASPART INJECTION 3 U QD S
     Route: 058
     Dates: start: 20250414, end: 20250416

REACTIONS (1)
  - Hypokalaemia [Recovered/Resolved]

NARRATIVE: CASE EVENT DATE: 20250415
